FAERS Safety Report 13527708 (Version 2)
Quarter: 2017Q2

REPORT INFORMATION
  Report Type: Report from Study
  Country: US (occurrence: US)
  Receive Date: 20170509
  Receipt Date: 20170627
  Transmission Date: 20170830
  Serious: Yes (Death)
  Sender: FDA-Public Use
  Company Number: US-VIFOR (INTERNATIONAL) INC.-VIT-2017-04995

PATIENT
  Sex: Female

DRUGS (4)
  1. PLAVIX [Concomitant]
     Active Substance: CLOPIDOGREL BISULFATE
  2. CARVEDILOL. [Concomitant]
     Active Substance: CARVEDILOL
  3. VELTASSA [Suspect]
     Active Substance: PATIROMER
     Indication: BLOOD POTASSIUM INCREASED
     Route: 048
     Dates: start: 20160801, end: 201609
  4. ACETYLSALICYLIC ACID [Concomitant]
     Active Substance: ASPIRIN

REACTIONS (7)
  - Cardiac arrest [Fatal]
  - Respiratory arrest [Fatal]
  - Constipation [Unknown]
  - Faeces hard [Unknown]
  - Multiple organ dysfunction syndrome [Fatal]
  - Cerebrovascular accident [Fatal]
  - Renal failure [Fatal]

NARRATIVE: CASE EVENT DATE: 2016
